FAERS Safety Report 8573441-9 (Version None)
Quarter: 2012Q3

REPORT INFORMATION
  Report Type: 
  Country: None (occurrence: None)
  Receive Date: 20120806
  Receipt Date: 20120803
  Transmission Date: 20120928
  Serious: No
  Sender: FDA-Public Use
  Company Number: US-PFIZER INC-2012189431

PATIENT
  Age: 52 Year
  Sex: Female
  Weight: 83.9 kg

DRUGS (2)
  1. METOPROLOL [Concomitant]
     Dosage: 50 MG, 1X/DAY
  2. PREMARIN [Suspect]
     Indication: HORMONE REPLACEMENT THERAPY
     Dosage: 0.45 MG, 1X/DAY
     Route: 048
     Dates: start: 20120702

REACTIONS (3)
  - DRUG DOSE OMISSION [None]
  - ARTHRALGIA [None]
  - EMOTIONAL DISORDER [None]
